FAERS Safety Report 14534213 (Version 1)
Quarter: 2018Q1

REPORT INFORMATION
  Report Type: Spontaneous
  Country: US (occurrence: US)
  Receive Date: 20180214
  Receipt Date: 20180214
  Transmission Date: 20180509
  Serious: No
  Sender: FDA-Public Use
  Company Number: None

PATIENT
  Sex: Female

DRUGS (8)
  1. APAP [Concomitant]
     Active Substance: ACETAMINOPHEN
  2. CLONIDINE. [Concomitant]
     Active Substance: CLONIDINE
  3. ALPRAZOLAM. [Concomitant]
     Active Substance: ALPRAZOLAM
  4. TACROLIMUS 1MG [Suspect]
     Active Substance: TACROLIMUS
     Indication: RENAL TRANSPLANT
     Dosage: 5MG/4MG  QAM/QPM
     Route: 048
     Dates: start: 20160331
  5. METOPROLOL. [Concomitant]
     Active Substance: METOPROLOL
  6. FUROSEMIDE. [Concomitant]
     Active Substance: FUROSEMIDE
  7. MYCOPHENOLIC [Concomitant]
     Active Substance: MYCOPHENOLIC ACID
  8. PREDNISONE. [Concomitant]
     Active Substance: PREDNISONE

REACTIONS (1)
  - Hospitalisation [None]
